FAERS Safety Report 7371462-5 (Version None)
Quarter: 2011Q1

REPORT INFORMATION
  Report Type: 
  Country: None (occurrence: None)
  Receive Date: 20110322
  Receipt Date: 20110322
  Transmission Date: 20110831
  Serious: Yes (Life-Threatening, Hospitalization)
  Sender: FDA-Public Use
  Company Number: None

PATIENT
  Age: 72 Year
  Sex: Female
  Weight: 96.61 kg

DRUGS (13)
  1. LOPRESSOR [Concomitant]
  2. AMARYL [Concomitant]
  3. NITROGLYCERIN [Concomitant]
  4. NOVOLIN 70/30 [Concomitant]
  5. PREDNISONE [Concomitant]
  6. LASIX [Concomitant]
  7. ZANTAC [Concomitant]
  8. PROVENTIL [Concomitant]
  9. PRADAXA [Suspect]
     Indication: ATRIAL FIBRILLATION
     Dosage: 150MG TWICE DAILY PO
     Route: 048
  10. NORVASC [Concomitant]
  11. ARICEPT [Concomitant]
  12. LANTUS [Concomitant]
  13. PRINIVIL [Concomitant]

REACTIONS (4)
  - DEPRESSED LEVEL OF CONSCIOUSNESS [None]
  - GASTROINTESTINAL HAEMORRHAGE [None]
  - HYPOTENSION [None]
  - GLOMERULAR FILTRATION RATE DECREASED [None]
